FAERS Safety Report 9040780 (Version 4)
Quarter: 2013Q1

REPORT INFORMATION
  Report Type: Spontaneous
  Country: JP (occurrence: JP)
  Receive Date: 20130129
  Receipt Date: 20130314
  Transmission Date: 20140127
  Serious: Yes (Other)
  Sender: FDA-Public Use
  Company Number: JP-JNJFOC-20130112773

PATIENT
  Age: 44 None
  Sex: Female
  Weight: 69 kg

DRUGS (12)
  1. REMICADE [Suspect]
     Indication: COLITIS ULCERATIVE
     Route: 042
     Dates: start: 20120806
  2. REMICADE [Suspect]
     Indication: COLITIS ULCERATIVE
     Route: 042
     Dates: start: 20120914
  3. REMICADE [Suspect]
     Indication: COLITIS ULCERATIVE
     Route: 042
     Dates: start: 20121109
  4. REMICADE [Suspect]
     Indication: COLITIS ULCERATIVE
     Dosage: FOURTH DOSE
     Route: 042
     Dates: start: 20121116
  5. REMICADE [Suspect]
     Indication: COLITIS ULCERATIVE
     Route: 042
     Dates: start: 20120817
  6. CELECOX [Concomitant]
     Indication: ARTHRALGIA
     Route: 048
     Dates: start: 20111101
  7. PROTECADIN [Concomitant]
     Indication: GASTRITIS
     Route: 048
     Dates: start: 20111227
  8. MIYA-BM [Concomitant]
     Indication: COLITIS ULCERATIVE
     Dosage: 2 TABLETS 3 TIMES A DAY
     Route: 048
     Dates: start: 20120407
  9. STEROIDS NOS [Concomitant]
     Route: 065
     Dates: start: 20121116
  10. ASACOL [Concomitant]
     Indication: COLITIS ULCERATIVE
     Route: 048
  11. BIOFERMIN R [Concomitant]
     Indication: COLITIS ULCERATIVE
     Dosage: 1 TABLET 3 TIMES A DAY
     Route: 048
  12. DEPAS [Concomitant]
     Indication: ANXIETY DISORDER
     Route: 048

REACTIONS (4)
  - Lupus-like syndrome [Recovering/Resolving]
  - Dyspnoea [Recovered/Resolved]
  - Infusion related reaction [Recovered/Resolved]
  - Urticaria [Recovered/Resolved]
